FAERS Safety Report 5533602-X (Version None)
Quarter: 2007Q4

REPORT INFORMATION
  Report Type: 
  Country: None (occurrence: None)
  Receive Date: 20071120
  Receipt Date: 20070907
  Transmission Date: 20080405
  Serious: No
  Sender: FDA-Public Use
  Company Number: WAES 0709USA00956

PATIENT
  Age: 49 Year
  Sex: Female

DRUGS (11)
  1. JANUVIA [Suspect]
     Indication: DIABETES MELLITUS
     Dosage: 100 MG/DAILY/PO ; 100 MG/DAILY/PO
     Route: 048
     Dates: start: 20070731, end: 20070807
  2. JANUVIA [Suspect]
     Indication: DIABETES MELLITUS
     Dosage: 100 MG/DAILY/PO ; 100 MG/DAILY/PO
     Route: 048
     Dates: start: 20070814
  3. ARMOUR THYROID TABLETS [Concomitant]
  4. COZAAR [Concomitant]
  5. EFFEXOR [Concomitant]
  6. LANTUS [Concomitant]
  7. LEVAQUIN [Concomitant]
  8. PRILOSEC OTC [Concomitant]
  9. TOPAMAX [Concomitant]
  10. INSULIN [Concomitant]
  11. METFORMIN HCL [Concomitant]

REACTIONS (3)
  - ANXIETY [None]
  - BLOOD GLUCOSE DECREASED [None]
  - HEADACHE [None]
